FAERS Safety Report 12844844 (Version 1)
Quarter: 2016Q4

REPORT INFORMATION
  Report Type: Spontaneous
  Country: US (occurrence: US)
  Receive Date: 20161013
  Receipt Date: 20161013
  Transmission Date: 20170207
  Serious: Yes (Other)
  Sender: FDA-Public Use
  Company Number: US-SAOL THERAPEUTICS-2016SAO00694

PATIENT
  Age: 37 Year
  Sex: Female
  Weight: 74.83 kg

DRUGS (2)
  1. BACLOFEN. [Suspect]
     Active Substance: BACLOFEN
     Indication: MUSCLE SPASTICITY
     Dosage: 409 ?G, 1X/DAY
     Route: 037
     Dates: start: 201505
  2. BACLOFEN. [Suspect]
     Active Substance: BACLOFEN
     Indication: HEMIPLEGIA

REACTIONS (15)
  - Hypertonia [Unknown]
  - C-reactive protein increased [None]
  - Implant site infection [Recovered/Resolved]
  - Nausea [Unknown]
  - Dyspnoea [Unknown]
  - Pruritus [Unknown]
  - Implant site warmth [Unknown]
  - Muscle spasticity [Unknown]
  - Implant site discolouration [Unknown]
  - White blood cell count increased [None]
  - Platelet count increased [None]
  - Diarrhoea [Unknown]
  - Device issue [Unknown]
  - Unevaluable event [Unknown]
  - Secretion discharge [Unknown]

NARRATIVE: CASE EVENT DATE: 201609
